FAERS Safety Report 9168948 (Version 3)
Quarter: 2014Q2

REPORT INFORMATION
  Report Type: Spontaneous
  Country: US (occurrence: None)
  Receive Date: 20130308
  Receipt Date: 20140501
  Transmission Date: 20141212
  Serious: Yes (Other)
  Sender: FDA-Public Use
  Company Number: ADR-2013-00362

PATIENT
  Sex: Male

DRUGS (9)
  1. BACLOFEN [Suspect]
     Indication: PAIN
  2. DILAUDID (HYDROMORPHONE) [Suspect]
  3. ORAL KADIAN 50 MG [Suspect]
     Dosage: FREQUENCY NOT REPORTED
  4. ORAL HYDROMORPHONE 240.4 MG [Suspect]
     Dosage: FREQUENCY NOT REPORTED
  5. ORAL BACLOFEN 240 MG [Suspect]
     Dosage: FREQUENCY NOT REPORTED?
  6. ORAL CLONAZEPAM [Suspect]
  7. ORAL AMBIEN [Suspect]
  8. ORAL DILAUDID [Suspect]
  9. ORAL MORPHINE SULPHATE [Suspect]
     Dosage: 12 HOURS (DOSE NOT REPORTED)

REACTIONS (19)
  - Treatment noncompliance [None]
  - Anger [None]
  - Diarrhoea [None]
  - Vomiting [None]
  - Hyperhidrosis [None]
  - Drug withdrawal syndrome [None]
  - Incision site complication [None]
  - Scab [None]
  - Economic problem [None]
  - Convulsion [None]
  - Drug administration error [None]
  - Therapeutic response decreased [None]
  - Impaired healing [None]
  - Liver disorder [None]
  - Alcohol abuse [None]
  - Leukaemia [None]
  - Back pain [None]
  - Therapy change [None]
  - Pain [None]
